FAERS Safety Report 23054675 (Version 1)
Quarter: 2023Q4

REPORT INFORMATION
  Report Type: Spontaneous
  Country: US (occurrence: US)
  Receive Date: 20231011
  Receipt Date: 20231011
  Transmission Date: 20240110
  Serious: No
  Sender: FDA-Public Use
  Company Number: US-BAYER-2023A138597

PATIENT
  Sex: Female

DRUGS (1)
  1. MIRALAX [Suspect]
     Active Substance: POLYETHYLENE GLYCOL 3350
     Indication: Constipation
     Dosage: 1 SACHET DISSOLVED IN BEVERAGE
     Route: 048
     Dates: start: 20230930, end: 20231002

REACTIONS (2)
  - Drug ineffective [Not Recovered/Not Resolved]
  - Off label use [None]
